FAERS Safety Report 10080363 (Version 1)
Quarter: 2014Q2

REPORT INFORMATION
  Report Type: Spontaneous
  Country: ES (occurrence: ES)
  Receive Date: 20140415
  Receipt Date: 20140415
  Transmission Date: 20141212
  Serious: Yes (Other)
  Sender: FDA-Public Use
  Company Number: ES-ABBVIE-14P-144-1224339-00

PATIENT
  Age: 40 Year
  Sex: Female

DRUGS (3)
  1. SEVORANE [Suspect]
     Indication: ANAESTHESIA
     Route: 055
     Dates: start: 201404, end: 201404
  2. PROPOFOL [Suspect]
     Indication: ANAESTHESIA
     Route: 042
     Dates: start: 201404, end: 201404
  3. FENTANEST [Suspect]
     Indication: ANAESTHESIA
     Dates: start: 201404, end: 201404

REACTIONS (2)
  - Oxygen saturation decreased [Recovered/Resolved]
  - Hypersensitivity [Recovered/Resolved]
